FAERS Safety Report 23521576 (Version 2)
Quarter: 2024Q1

REPORT INFORMATION
  Report Type: Spontaneous
  Country: US (occurrence: US)
  Receive Date: 20240214
  Receipt Date: 20240214
  Transmission Date: 20240410
  Serious: Yes (Other)
  Sender: FDA-Public Use
  Company Number: US-GILEAD-2024-0661114

PATIENT
  Sex: Male

DRUGS (1)
  1. EPCLUSA [Suspect]
     Active Substance: SOFOSBUVIR\VELPATASVIR
     Indication: Chronic hepatitis C
     Dosage: UNK
     Route: 065
     Dates: start: 2020

REACTIONS (4)
  - Hepatocellular carcinoma [Unknown]
  - Hepatitis C [Not Recovered/Not Resolved]
  - Viral load [Unknown]
  - Drug ineffective [Not Recovered/Not Resolved]
